FAERS Safety Report 17684357 (Version 1)
Quarter: 2020Q2

REPORT INFORMATION
  Report Type: Spontaneous
  Country: US (occurrence: US)
  Receive Date: 20200417
  Receipt Date: 20200417
  Transmission Date: 20200714
  Serious: Yes (Death)
  Sender: FDA-Public Use
  Company Number: None

PATIENT
  Age: 71 Year
  Sex: Male
  Weight: 199 kg

DRUGS (1)
  1. APIXABAN (APIXABAN 5MG TAB) [Suspect]
     Active Substance: APIXABAN
     Indication: ATRIAL FIBRILLATION
     Route: 048
     Dates: start: 20151019, end: 20191006

REACTIONS (4)
  - Blood loss anaemia [None]
  - Metastatic neoplasm [None]
  - Gastric haemorrhage [None]
  - Hepatic neoplasm [None]

NARRATIVE: CASE EVENT DATE: 20191006
